FAERS Safety Report 12098886 (Version 1)
Quarter: 2016Q1

REPORT INFORMATION
  Report Type: Spontaneous
  Country: US (occurrence: None)
  Receive Date: 20160219
  Receipt Date: 20160219
  Transmission Date: 20160526
  Serious: Yes (Disabling)
  Sender: FDA-Public Use
  Company Number: None

PATIENT
  Age: 54 Year
  Sex: Female
  Weight: 56.25 kg

DRUGS (1)
  1. PEGASYS [Suspect]
     Active Substance: PEGINTERFERON ALFA-2A

REACTIONS (10)
  - Dysstasia [None]
  - Diplopia [None]
  - Feeling abnormal [None]
  - Activities of daily living impaired [None]
  - Porphyria non-acute [None]
  - Macular fibrosis [None]
  - Dyspnoea [None]
  - Asthenia [None]
  - Suicidal ideation [None]
  - Anhedonia [None]
